FAERS Safety Report 12340574 (Version 2)
Quarter: 2016Q2

REPORT INFORMATION
  Report Type: Spontaneous
  Country: CA (occurrence: CA)
  Receive Date: 20160506
  Receipt Date: 20160617
  Transmission Date: 20160815
  Serious: Yes (Death, Life-Threatening, Hospitalization, Other)
  Sender: FDA-Public Use
  Company Number: CA-JNJFOC-20160503857

PATIENT

DRUGS (8)
  1. METFORMIN [Concomitant]
     Active Substance: METFORMIN HYDROCHLORIDE
     Indication: DIABETES MELLITUS
     Route: 065
  2. INSULIN [Concomitant]
     Active Substance: INSULIN NOS
     Indication: TYPE 1 DIABETES MELLITUS
     Route: 065
  3. INVOKANA [Suspect]
     Active Substance: CANAGLIFLOZIN
     Indication: TYPE 1 DIABETES MELLITUS
     Dosage: DOSE IS 100, 200 OR 300 MG.
  4. INSULIN [Concomitant]
     Active Substance: INSULIN NOS
     Indication: TYPE 2 DIABETES MELLITUS
     Route: 065
  5. INSULIN [Concomitant]
     Active Substance: INSULIN NOS
     Indication: TYPE 2 DIABETES MELLITUS
     Route: 065
  6. INVOKANA [Suspect]
     Active Substance: CANAGLIFLOZIN
     Indication: DIABETES MELLITUS
     Dosage: DOSE IS 100, 200 OR 300 MG.
  7. INSULIN [Concomitant]
     Active Substance: INSULIN NOS
     Indication: TYPE 1 DIABETES MELLITUS
     Route: 065
  8. INVOKANA [Suspect]
     Active Substance: CANAGLIFLOZIN
     Indication: TYPE 2 DIABETES MELLITUS
     Dosage: DOSE IS 100, 200 OR 300 MG.

REACTIONS (17)
  - Acidosis [Unknown]
  - Product use issue [Unknown]
  - Incorrect dose administered [Unknown]
  - Urine ketone body [Unknown]
  - Ketosis [Unknown]
  - Hyperosmolar hyperglycaemic state [Unknown]
  - Infection [Unknown]
  - Weight decreased [Unknown]
  - Diabetic hyperosmolar coma [Unknown]
  - Ketoacidosis [Fatal]
  - Metabolic acidosis [Unknown]
  - Blood glucose increased [Unknown]
  - Ketonuria [Unknown]
  - Off label use [Unknown]
  - Diabetic ketoacidosis [Unknown]
  - Blood ketone body increased [Unknown]
  - Diabetic ketoacidotic hyperglycaemic coma [Unknown]
